FAERS Safety Report 13793899 (Version 1)
Quarter: 2017Q3

REPORT INFORMATION
  Report Type: Spontaneous
  Country: US (occurrence: US)
  Receive Date: 20170726
  Receipt Date: 20170726
  Transmission Date: 20171127
  Serious: No
  Sender: FDA-Public Use
  Company Number: US-009507513-1707USA010065

PATIENT
  Age: 36 Year
  Sex: Female
  Weight: 86.17 kg

DRUGS (1)
  1. NEXPLANON [Suspect]
     Active Substance: ETONOGESTREL
     Indication: CONTRACEPTION
     Dosage: 1 DF, 4 YEAR IMPLANT, IMPLANT IN LEFT ARM
     Route: 059
     Dates: start: 20170713

REACTIONS (4)
  - Mood swings [Unknown]
  - Vulvovaginal pruritus [Unknown]
  - Vaginal discharge [Unknown]
  - Irritability [Unknown]

NARRATIVE: CASE EVENT DATE: 201707
